FAERS Safety Report 4424929-3 (Version None)
Quarter: 2004Q3

REPORT INFORMATION
  Report Type: 
  Country: None (occurrence: None)
  Receive Date: 20040809
  Receipt Date: 20040726
  Transmission Date: 20050211
  Serious: Yes (Hospitalization)
  Sender: FDA-Public Use
  Company Number: US-JNJFOC-20040707034

PATIENT
  Age: 52 Year
  Sex: Male

DRUGS (6)
  1. INFLIXIMAB LYOPHILIZED POWDER (INFLIXIMAB, RECOMBINANT) [Suspect]
     Indication: RHEUMATOID ARTHRITIS
     Dosage: 1 IN 8 WEEK INTRAVENOUS
     Route: 042
     Dates: start: 20000718
  2. METHOTREXATE [Concomitant]
  3. TYLENOL (UNSPECIFIED) ACETAMINOPHEN [Concomitant]
  4. PRILOSEC [Concomitant]
  5. FOLIC ACID [Concomitant]
  6. ANTI-INFLAMMATORY (ANTIINFLAMMATORY/ANTIRHEUMATIC PRODUCTS) [Concomitant]

REACTIONS (1)
  - DYSPNOEA [None]
